FAERS Safety Report 9731310 (Version 1)
Quarter: 2013Q4

REPORT INFORMATION
  Report Type: Spontaneous
  Country: FR (occurrence: FR)
  Receive Date: 20131205
  Receipt Date: 20131205
  Transmission Date: 20140711
  Serious: Yes (Life-Threatening, Hospitalization, Other)
  Sender: FDA-Public Use
  Company Number: FR-MERCK-1312FRA000312

PATIENT
  Age: 58 Year
  Sex: Male
  Weight: 56 kg

DRUGS (5)
  1. VICTRELIS [Suspect]
     Indication: HEPATITIS C
     Dosage: 800 MG, TID
     Route: 048
     Dates: start: 20110601, end: 20120216
  2. REBETOL [Suspect]
     Indication: HEPATITIS C
     Dosage: 600 MG, QD
     Route: 048
     Dates: start: 20110505, end: 20120216
  3. VIRAFERONPEG [Suspect]
     Indication: HEPATITIS C
     Dosage: 80 MICROGRAM, QW
     Route: 058
     Dates: start: 20110505, end: 20120216
  4. LOXAPAC (LOXAPINE SUCCINATE) [Concomitant]
     Indication: DEPRESSION
     Dosage: UNK
     Dates: start: 20110915
  5. EPOETIN BETA [Concomitant]
     Indication: ANAEMIA
     Dosage: 20000 IU, QW
     Dates: start: 20110630, end: 20120216

REACTIONS (2)
  - Suicide attempt [Recovered/Resolved]
  - Epilepsy [Recovered/Resolved]
